FAERS Safety Report 7957745-6 (Version None)
Quarter: 2011Q4

REPORT INFORMATION
  Report Type: 
  Country: None (occurrence: None)
  Receive Date: 20111205
  Receipt Date: 20111130
  Transmission Date: 20120403
  Serious: Yes (Disabling, Other)
  Sender: FDA-Public Use
  Company Number: PHHY2011NL098880

PATIENT
  Sex: Male
  Weight: 95 kg

DRUGS (7)
  1. PREDNISONE TAB [Concomitant]
     Dosage: 5 MG, BID
  2. ZOMETA [Suspect]
     Indication: PROSTATE CANCER METASTATIC
     Dosage: 4 MG/ 5 ML ONCE PER 28 DAYS
     Dates: start: 20101104
  3. DOCETAXEL [Concomitant]
     Dosage: UNK
  4. FENTANYL [Concomitant]
     Dosage: UNK
  5. LHRH [Concomitant]
     Dosage: UNK
  6. METOCLOPRAMIDE [Concomitant]
     Dosage: UNK
  7. ZOMETA [Suspect]
     Dosage: 4 MG/ 5 ML ONCE PER 28 DAYS
     Dates: start: 20111101

REACTIONS (4)
  - OSTEONECROSIS OF JAW [None]
  - ERYTHEMA [None]
  - PAIN [None]
  - OEDEMA MOUTH [None]
